FAERS Safety Report 8014134-6 (Version None)
Quarter: 2011Q4

REPORT INFORMATION
  Report Type: 
  Country: None (occurrence: None)
  Receive Date: 20111229
  Receipt Date: 20110914
  Transmission Date: 20120403
  Serious: No
  Sender: FDA-Public Use
  Company Number: US-BAYER-2011-090928

PATIENT
  Age: 57 Year
  Sex: Male
  Weight: 87.982 kg

DRUGS (3)
  1. ALEVE (CAPLET) [Suspect]
     Indication: ANALGESIC THERAPY
     Dosage: UNK
     Dates: start: 20110801, end: 20110831
  2. FISH OIL [Suspect]
  3. CENTRUM [Suspect]

REACTIONS (3)
  - LOCAL SWELLING [None]
  - CONTUSION [None]
  - LIP SWELLING [None]
